FAERS Safety Report 9086978 (Version 1)
Quarter: 2013Q1

REPORT INFORMATION
  Report Type: Spontaneous
  Country: US (occurrence: US)
  Receive Date: 20130131
  Receipt Date: 20130131
  Transmission Date: 20140127
  Serious: Yes (Hospitalization)
  Sender: FDA-Public Use
  Company Number: US-ROCHE-1185136

PATIENT
  Age: 21 Year
  Sex: Female

DRUGS (1)
  1. ACTIVASE [Suspect]
     Indication: DEEP VEIN THROMBOSIS
     Route: 065

REACTIONS (3)
  - Tremor [Recovered/Resolved]
  - Heart rate increased [Recovered/Resolved]
  - Drug ineffective [Unknown]
